FAERS Safety Report 7922341-3 (Version None)
Quarter: 2011Q4

REPORT INFORMATION
  Report Type: 
  Country: None (occurrence: None)
  Receive Date: 20111117
  Receipt Date: 20110119
  Transmission Date: 20120403
  Serious: No
  Sender: FDA-Public Use
  Company Number: US-AMGEN-USASP2011003373

PATIENT
  Age: 69 Year
  Sex: Male

DRUGS (2)
  1. TREXALL [Concomitant]
     Dates: start: 19980101
  2. ENBREL [Suspect]
     Indication: RHEUMATOID ARTHRITIS
     Dates: start: 19980501

REACTIONS (1)
  - NASOPHARYNGITIS [None]
